FAERS Safety Report 6343669-7 (Version None)
Quarter: 2009Q3

REPORT INFORMATION
  Report Type: 
  Country: None (occurrence: None)
  Receive Date: 20090903
  Receipt Date: 20090903
  Transmission Date: 20100115
  Serious: No
  Sender: FDA-Public Use
  Company Number: None

PATIENT
  Sex: Female

DRUGS (3)
  1. BONIVA [Suspect]
     Indication: OSTEOPOROSIS
     Dosage: 1 TAB ONCE/MO ORAL
     Route: 048
     Dates: start: 20090601
  2. BONIVA [Suspect]
     Indication: OSTEOPOROSIS
     Dosage: 1 TAB ONCE/MO ORAL
     Route: 048
     Dates: start: 20090715
  3. BONIVA [Suspect]
     Indication: OSTEOPOROSIS
     Dosage: 1 TAB ONCE/MO ORAL
     Route: 048
     Dates: start: 20090819

REACTIONS (2)
  - MYALGIA [None]
  - MYOSITIS [None]
